FAERS Safety Report 9267346 (Version 2)
Quarter: 2013Q2

REPORT INFORMATION
  Report Type: Report from Study
  Country: BR (occurrence: BR)
  Receive Date: 20130502
  Receipt Date: 20130506
  Transmission Date: 20140414
  Serious: Yes (Hospitalization)
  Sender: FDA-Public Use
  Company Number: BR-ABBOTT-13P-020-1082667-00

PATIENT
  Age: 31 Year
  Sex: Male
  Weight: 68.5 kg

DRUGS (6)
  1. HUMIRA [Suspect]
     Indication: CROHN^S DISEASE
     Route: 058
     Dates: start: 201110
  2. HUMIRA [Suspect]
     Route: 058
  3. HUMIRA [Suspect]
     Route: 058
     Dates: end: 201302
  4. HUMIRA [Suspect]
     Route: 058
     Dates: start: 201302
  5. PREDNISONE [Concomitant]
     Indication: PAIN
     Route: 048
     Dates: start: 201207, end: 201302
  6. PREDNISONE [Concomitant]
     Indication: PRODUCT USED FOR UNKNOWN INDICATION

REACTIONS (7)
  - Intestinal obstruction [Recovered/Resolved]
  - Subileus [Recovered/Resolved]
  - Dehydration [Unknown]
  - Vomiting [Unknown]
  - Discomfort [Unknown]
  - Gastrooesophageal reflux disease [Unknown]
  - Abdominal pain [Unknown]
